FAERS Safety Report 14686387 (Version 1)
Quarter: 2018Q1

REPORT INFORMATION
  Report Type: Spontaneous
  Country: US (occurrence: US)
  Receive Date: 20180327
  Receipt Date: 20180327
  Transmission Date: 20180509
  Serious: Yes (Hospitalization, Other)
  Sender: FDA-Public Use
  Company Number: US-IMPAX LABORATORIES, INC-2018-IPXL-00943

PATIENT
  Age: 15 Year
  Sex: Female

DRUGS (7)
  1. MEDROXYPROGESTERONE [Concomitant]
     Active Substance: MEDROXYPROGESTERONE
     Indication: CONTRACEPTION
     Dosage: UNK
     Route: 065
  2. DOXYCYCLINE HYCLATE DELAYED RELEASE [Suspect]
     Active Substance: DOXYCYCLINE HYCLATE
     Indication: CHLAMYDIAL INFECTION
     Dosage: UNK; TOOK ONLY 2 DOSES
     Route: 065
  3. METRONIDAZOLE. [Suspect]
     Active Substance: METRONIDAZOLE
     Indication: CHLAMYDIAL PELVIC INFLAMMATORY DISEASE
  4. METRONIDAZOLE. [Suspect]
     Active Substance: METRONIDAZOLE
     Indication: CHLAMYDIAL INFECTION
     Dosage: UNK; TOOK ONLY 2 DOSES
     Route: 065
  5. CEFTRIAXONE. [Suspect]
     Active Substance: CEFTRIAXONE
     Indication: CHLAMYDIAL PELVIC INFLAMMATORY DISEASE
  6. DOXYCYCLINE HYCLATE DELAYED RELEASE [Suspect]
     Active Substance: DOXYCYCLINE HYCLATE
     Indication: CHLAMYDIAL PELVIC INFLAMMATORY DISEASE
  7. CEFTRIAXONE. [Suspect]
     Active Substance: CEFTRIAXONE
     Indication: CHLAMYDIAL INFECTION
     Dosage: UNK
     Route: 030

REACTIONS (2)
  - Chlamydial pelvic inflammatory disease [Unknown]
  - Treatment noncompliance [Unknown]
